FAERS Safety Report 12316923 (Version 1)
Quarter: 2016Q2

REPORT INFORMATION
  Report Type: Spontaneous
  Country: US (occurrence: None)
  Receive Date: 20160428
  Receipt Date: 20160428
  Transmission Date: 20160815
  Serious: No
  Sender: FDA-Public Use
  Company Number: None

PATIENT
  Age: 62 Year
  Sex: Female
  Weight: 58.97 kg

DRUGS (8)
  1. OXYCODONE-ACETAMINOPHEN, 325 MG AUROBIND [Suspect]
     Active Substance: ACETAMINOPHEN\OXYCODONE HYDROCHLORIDE
     Indication: PROCEDURAL PAIN
     Route: 048
     Dates: start: 20160317, end: 20160323
  2. BOSWELLIA [Concomitant]
  3. METOPROLOL. [Concomitant]
     Active Substance: METOPROLOL
  4. LISINOPRIL. [Concomitant]
     Active Substance: LISINOPRIL
  5. VITAMIN D3 [Concomitant]
     Active Substance: CHOLECALCIFEROL
  6. NIACIN. [Concomitant]
     Active Substance: NIACIN
  7. PYCOGENAL [Concomitant]
  8. LUTEIN [Concomitant]
     Active Substance: LUTEIN

REACTIONS (3)
  - Anxiety [None]
  - Feeling abnormal [None]
  - Mental disorder [None]

NARRATIVE: CASE EVENT DATE: 20160323
